FAERS Safety Report 6456545-6 (Version None)
Quarter: 2009Q4

REPORT INFORMATION
  Report Type: 
  Country: None (occurrence: None)
  Receive Date: 20091125
  Receipt Date: 20091116
  Transmission Date: 20100525
  Serious: Yes (Hospitalization)
  Sender: FDA-Public Use
  Company Number: GB-SANOFI-AVENTIS-2009SA002645

PATIENT
  Age: 56 Year
  Sex: Female

DRUGS (7)
  1. ENOXAPARIN SODIUM [Suspect]
     Indication: DRUG USE FOR UNKNOWN INDICATION
     Route: 058
  2. LANOXIN [Suspect]
     Indication: ATRIAL FIBRILLATION
     Dates: start: 20091012
  3. LEVOTHYROXINE [Concomitant]
     Route: 048
     Dates: start: 20060101
  4. METHOTREXATE [Concomitant]
     Route: 048
     Dates: start: 20060101
  5. PREDNISOLONE [Concomitant]
     Route: 048
     Dates: start: 20060101
  6. FORMOTEROL W/BUDESONIDE [Concomitant]
     Route: 055
     Dates: start: 20060101
  7. TOPIRAMATE [Concomitant]

REACTIONS (1)
  - DIZZINESS [None]
